FAERS Safety Report 6406551-2 (Version None)
Quarter: 2009Q4

REPORT INFORMATION
  Report Type: 
  Country: None (occurrence: None)
  Receive Date: 20091014
  Receipt Date: 20091006
  Transmission Date: 20100525
  Serious: Yes (Hospitalization)
  Sender: FDA-Public Use
  Company Number: ADR40592009

PATIENT
  Age: 70 Year
  Sex: Male

DRUGS (6)
  1. RAMIPRIL [Suspect]
     Indication: HYPERTENSION
     Dosage: 5MG; ORAL
     Route: 048
  2. ATENOLOL [Concomitant]
  3. SEROQUEL (300 MG - BID, 400 MG, 500MG, 600 MG) [Concomitant]
  4. ACETYLSALICYLIC ACID (75 MG) [Concomitant]
  5. FLUOXETINE [Concomitant]
  6. ACETAMINOPHEN [Concomitant]

REACTIONS (4)
  - DRUG ADMINISTRATION ERROR [None]
  - HYPOTENSION [None]
  - INCORRECT DOSE ADMINISTERED [None]
  - SYNCOPE [None]
